FAERS Safety Report 10219297 (Version 1)
Quarter: 2014Q2

REPORT INFORMATION
  Report Type: Spontaneous
  Country: US (occurrence: None)
  Receive Date: 20140604
  Receipt Date: 20140604
  Transmission Date: 20141212
  Serious: No
  Sender: FDA-Public Use
  Company Number: None

PATIENT
  Age: 62 Year
  Sex: Female

DRUGS (2)
  1. RIBAPAK 400/400MG DOSE PK [Suspect]
     Dosage: 1 TAB BID ORAL
     Route: 048
     Dates: start: 20140422, end: 20140507
  2. SOVALDI [Concomitant]

REACTIONS (2)
  - Anaemia [None]
  - Renal impairment [None]
